FAERS Safety Report 12862070 (Version 2)
Quarter: 2016Q4

REPORT INFORMATION
  Report Type: Spontaneous
  Country: JP (occurrence: JP)
  Receive Date: 20161019
  Receipt Date: 20161121
  Transmission Date: 20170207
  Serious: Yes (Death)
  Sender: FDA-Public Use
  Company Number: JP-JNJFOC-20161014176

PATIENT

DRUGS (1)
  1. ZYTIGA [Suspect]
     Active Substance: ABIRATERONE ACETATE
     Indication: PRODUCT USED FOR UNKNOWN INDICATION
     Route: 048

REACTIONS (9)
  - Vomiting [Unknown]
  - Amylase increased [Unknown]
  - Hepatic function abnormal [Unknown]
  - Malaise [Unknown]
  - Drug ineffective [Unknown]
  - Dysphagia [Unknown]
  - Death [Fatal]
  - Nausea [Unknown]
  - Decreased appetite [Unknown]
